FAERS Safety Report 10171393 (Version 3)
Quarter: 2014Q2

REPORT INFORMATION
  Report Type: Report from Study
  Country: CZ (occurrence: None)
  Receive Date: 20140512
  Receipt Date: 20140605
  Transmission Date: 20141212
  Serious: Yes (Hospitalization)
  Sender: FDA-Public Use
  Company Number: 2014MPI00491

PATIENT
  Age: 68 Year
  Sex: Male
  Weight: 60.1 kg

DRUGS (1)
  1. BRENTUXIMAB VEDOTIN [Suspect]
     Indication: HODGKIN^S DISEASE
     Route: 042
     Dates: start: 20140130, end: 20140410

REACTIONS (5)
  - Cardiac failure acute [None]
  - Malnutrition [None]
  - Toxicity to various agents [None]
  - Coronary artery stenosis [None]
  - Dyspnoea exertional [None]
